FAERS Safety Report 6680888-4 (Version None)
Quarter: 2010Q2

REPORT INFORMATION
  Report Type: 
  Country: None (occurrence: None)
  Receive Date: 20100413
  Receipt Date: 20100413
  Transmission Date: 20101027
  Serious: No
  Sender: FDA-Public Use
  Company Number: None

PATIENT
  Age: 60 Year
  Sex: Female
  Weight: 58.9676 kg

DRUGS (1)
  1. INNOVATIVE SMOKING HIGH SOPHISTICATION NEEDS INNOCETIVE [Suspect]
     Indication: SMOKING CESSATION THERAPY
     Dosage: HIGH--LOW O PO
     Route: 048
     Dates: start: 20100317, end: 20100317

REACTIONS (3)
  - DRUG INTERACTION [None]
  - ECONOMIC PROBLEM [None]
  - MALAISE [None]
